FAERS Safety Report 21791462 (Version 1)
Quarter: 2022Q4

REPORT INFORMATION
  Report Type: Spontaneous
  Country: BY (occurrence: BY)
  Receive Date: 20221228
  Receipt Date: 20221228
  Transmission Date: 20230113
  Serious: Yes (Other)
  Sender: FDA-Public Use
  Company Number: BY-JNJFOC-20221250630

PATIENT
  Age: 57 Year
  Sex: Female
  Weight: 59 kg

DRUGS (19)
  1. SIRTURO [Suspect]
     Active Substance: BEDAQUILINE FUMARATE
     Indication: Product used for unknown indication
     Route: 048
     Dates: start: 20220802
  2. PRETOMANID [Suspect]
     Active Substance: PRETOMANID
     Indication: Product used for unknown indication
     Route: 048
     Dates: start: 20220802
  3. LINEZOLID [Suspect]
     Active Substance: LINEZOLID
     Indication: Product used for unknown indication
     Route: 048
     Dates: start: 20220802
  4. LINEZOLID [Suspect]
     Active Substance: LINEZOLID
     Route: 048
     Dates: end: 20221220
  5. MOXIFLOXACIN [Suspect]
     Active Substance: MOXIFLOXACIN
     Indication: Product used for unknown indication
     Route: 048
     Dates: start: 20220802
  6. LACTULOSE [Concomitant]
     Active Substance: LACTULOSE
     Indication: Constipation
     Dosage: AFTERNOON
     Route: 065
     Dates: start: 20220921, end: 20220923
  7. LACTULOSE [Concomitant]
     Active Substance: LACTULOSE
     Dosage: MORNING
     Route: 065
     Dates: start: 20221001, end: 20221020
  8. LACTULOSE [Concomitant]
     Active Substance: LACTULOSE
     Route: 065
     Dates: start: 20221020, end: 20221031
  9. LACTULOSE [Concomitant]
     Active Substance: LACTULOSE
     Route: 065
     Dates: start: 20221122, end: 20221219
  10. BISACODYL [Concomitant]
     Active Substance: BISACODYL
     Indication: Constipation
     Dosage: 2 TABLETS AT NIGHT WITH A GLASS OF WATER
     Route: 065
     Dates: start: 20220811
  11. BISACODYL [Concomitant]
     Active Substance: BISACODYL
     Dosage: 2 TABLETS AT NIGHT WITH A GLASS OF WATER
     Route: 065
     Dates: start: 20220923, end: 20220928
  12. BISACODYL [Concomitant]
     Active Substance: BISACODYL
     Dosage: 2 TABLETS AT NIGHT WITH A GLASS OF WATER
     Route: 065
     Dates: start: 20220930, end: 20221005
  13. BISACODYL [Concomitant]
     Active Substance: BISACODYL
     Dosage: 2 TABLETS AT NIGHT WITH A GLASS OF WATER
     Route: 065
     Dates: start: 20221011
  14. BISACODYL [Concomitant]
     Active Substance: BISACODYL
     Dosage: 2 TABLETS AT NIGHT WITH A GLASS OF WATER
     Route: 065
     Dates: start: 20221112
  15. BISACODYL [Concomitant]
     Active Substance: BISACODYL
     Dosage: 2 TABLETS AT NIGHT WITH A GLASS OF WATER
     Route: 065
     Dates: start: 20221123, end: 20221125
  16. BISACODYL [Concomitant]
     Active Substance: BISACODYL
     Dosage: 2 TABLETS AT NIGHT WITH A GLASS OF WATER
     Route: 065
     Dates: start: 20221205, end: 20221208
  17. PYRIDOXINE [Concomitant]
     Active Substance: PYRIDOXINE
     Indication: Prophylaxis
     Route: 065
     Dates: start: 20220802
  18. METOCLOPRAMIDE [Concomitant]
     Active Substance: METOCLOPRAMIDE
     Indication: Product used for unknown indication
     Dosage: 1 TON
     Route: 065
     Dates: start: 20220921, end: 20220929
  19. METOCLOPRAMIDE [Concomitant]
     Active Substance: METOCLOPRAMIDE
     Dosage: 1 TON
     Route: 065
     Dates: start: 20221021, end: 20221115

REACTIONS (2)
  - Constipation [Not Recovered/Not Resolved]
  - Nausea [Unknown]

NARRATIVE: CASE EVENT DATE: 20220913
